FAERS Safety Report 10111462 (Version 1)
Quarter: 2014Q2

REPORT INFORMATION
  Report Type: Report from Study
  Country: US (occurrence: US)
  Receive Date: 20140425
  Receipt Date: 20140425
  Transmission Date: 20141212
  Serious: Yes (Death)
  Sender: FDA-Public Use
  Company Number: US-SA-2014SA048384

PATIENT
  Age: 63 Year
  Sex: Male

DRUGS (1)
  1. LANTUS SOLOSTAR [Suspect]
     Indication: TYPE 2 DIABETES MELLITUS
     Dosage: DOSE: 35U QAM, 35U QPM DOSE:35 UNIT(S)
     Route: 058
     Dates: start: 20121121, end: 20140404

REACTIONS (1)
  - Death [Fatal]
